FAERS Safety Report 6516128-6 (Version None)
Quarter: 2009Q4

REPORT INFORMATION
  Report Type: 
  Country: None (occurrence: None)
  Receive Date: 20091223
  Receipt Date: 20091221
  Transmission Date: 20100525
  Serious: Yes (Death)
  Sender: FDA-Public Use
  Company Number: JP-SANOFI-AVENTIS-2009SA004867

PATIENT
  Age: 89 Year
  Sex: Male
  Weight: 48 kg

DRUGS (12)
  1. PLAVIX [Suspect]
     Route: 048
     Dates: start: 20081126, end: 20081126
  2. PLAVIX [Suspect]
     Route: 048
     Dates: start: 20081127, end: 20081207
  3. RHYTHMY [Concomitant]
     Route: 048
     Dates: end: 20090414
  4. WARFARIN SODIUM [Concomitant]
     Indication: ARRHYTHMIA
     Route: 048
     Dates: end: 20081127
  5. WARFARIN SODIUM [Concomitant]
     Route: 048
     Dates: start: 20081128, end: 20081130
  6. WARFARIN SODIUM [Concomitant]
     Route: 048
     Dates: start: 20081201, end: 20081203
  7. WARFARIN SODIUM [Concomitant]
     Route: 048
     Dates: start: 20081204, end: 20090414
  8. DEZOLAM [Concomitant]
     Route: 048
     Dates: end: 20090414
  9. SPIRONOLACTONE [Concomitant]
     Route: 048
     Dates: start: 20081127, end: 20090414
  10. LASIX [Concomitant]
     Route: 048
     Dates: start: 20081129, end: 20090414
  11. PERINDOPRIL ERBUMINE [Concomitant]
     Route: 048
     Dates: start: 20081127, end: 20090414
  12. NIVADIL [Concomitant]
     Route: 048
     Dates: end: 20090414

REACTIONS (1)
  - CARDIAC FAILURE CHRONIC [None]
